FAERS Safety Report 24105290 (Version 1)
Quarter: 2024Q3

REPORT INFORMATION
  Report Type: Spontaneous
  Country: FR (occurrence: FR)
  Receive Date: 20240717
  Receipt Date: 20240717
  Transmission Date: 20241016
  Serious: Yes (Other)
  Sender: ORGANON
  Company Number: None

PATIENT
  Age: 71 Year
  Sex: Male
  Weight: 64 kg

DRUGS (1)
  1. LIPTRUZET [Suspect]
     Active Substance: ATORVASTATIN CALCIUM\EZETIMIBE
     Indication: Hypercholesterolaemia
     Dosage: 10 MILLIGRAM
     Route: 048
     Dates: start: 20220201

REACTIONS (2)
  - Vision blurred [Recovered/Resolved]
  - Muscular weakness [Recovered/Resolved]

NARRATIVE: CASE EVENT DATE: 20220701
